FAERS Safety Report 20417557 (Version 1)
Quarter: 2022Q1

REPORT INFORMATION
  Report Type: Spontaneous
  Country: AU (occurrence: None)
  Receive Date: 20220202
  Receipt Date: 20220202
  Transmission Date: 20220423
  Serious: Yes (Other)
  Sender: FDA-Public Use
  Company Number: 2022A048809

PATIENT
  Sex: Female

DRUGS (4)
  1. FULVESTRANT [Suspect]
     Active Substance: FULVESTRANT
     Indication: Breast cancer metastatic
     Route: 030
  2. OLAPARIB [Suspect]
     Active Substance: OLAPARIB
     Route: 048
  3. CARBOPLATIN [Concomitant]
     Active Substance: CARBOPLATIN
  4. GEMCITABINE [Concomitant]
     Active Substance: GEMCITABINE

REACTIONS (7)
  - Malignant neoplasm progression [Unknown]
  - Transaminases increased [Unknown]
  - Abdominal distension [Unknown]
  - Carbohydrate antigen 125 increased [Unknown]
  - Carbohydrate antigen 19-9 increased [Unknown]
  - Malignant ascites [Unknown]
  - Eyelid ptosis [Unknown]
